FAERS Safety Report 8401348-6 (Version None)
Quarter: 2012Q2

REPORT INFORMATION
  Report Type: 
  Country: None (occurrence: None)
  Receive Date: 20120601
  Receipt Date: 20120525
  Transmission Date: 20120825
  Serious: Yes (Other)
  Sender: FDA-Public Use
  Company Number: US-PFIZER INC-2012127137

PATIENT
  Age: 68 Year
  Sex: Male

DRUGS (9)
  1. DIPHENHYDRAMINE [Concomitant]
     Indication: ANAPHYLACTIC REACTION
     Dosage: 50 MG, UNK
     Route: 042
  2. RAMIPRIL [Concomitant]
     Dosage: UNK
  3. SITAGLIPTIN [Concomitant]
     Dosage: UNK
  4. METOPROLOL [Concomitant]
     Dosage: UNK
  5. METFORMIN [Concomitant]
     Dosage: UNK
  6. ATORVASTATIN [Concomitant]
     Dosage: UNK
  7. ACETYLSALICYLIC ACID [Concomitant]
     Dosage: UNK
  8. EPINEPHRINE [Suspect]
     Indication: ANAPHYLACTIC REACTION
     Dosage: 0.3 MG, IN 1:1000
     Route: 030
  9. GLIPIZIDE [Concomitant]
     Dosage: UNK

REACTIONS (1)
  - CORONARY ARTERY THROMBOSIS [None]
